FAERS Safety Report 7551327-6 (Version None)
Quarter: 2011Q2

REPORT INFORMATION
  Report Type: 
  Country: None (occurrence: None)
  Receive Date: 20110616
  Receipt Date: 20110614
  Transmission Date: 20111010
  Serious: Yes (Hospitalization)
  Sender: FDA-Public Use
  Company Number: JP-PFIZER INC-2011128187

PATIENT
  Age: 55 Year
  Sex: Male

DRUGS (1)
  1. VARENICLINE TARTRATE [Suspect]
     Dosage: 1 MG/DAY
     Route: 048
     Dates: start: 20110530

REACTIONS (2)
  - GAIT DISTURBANCE [None]
  - HYPOAESTHESIA [None]
